FAERS Safety Report 8598291-9 (Version None)
Quarter: 2012Q3

REPORT INFORMATION
  Report Type: 
  Country: None (occurrence: None)
  Receive Date: 20120806
  Receipt Date: 20120806
  Transmission Date: 20120928
  Serious: Yes (Other)
  Sender: FDA-Public Use
  Company Number: None

PATIENT
  Age: 36 Year
  Sex: Female
  Weight: 113.3993 kg

DRUGS (1)
  1. MIRENA [Suspect]
     Indication: CONTRACEPTION
     Dates: start: 20080101, end: 20120701

REACTIONS (7)
  - ANXIETY [None]
  - LOSS OF LIBIDO [None]
  - DEPRESSION [None]
  - VAGINAL DISCHARGE [None]
  - PELVIC PAIN [None]
  - WEIGHT INCREASED [None]
  - ACNE [None]
